FAERS Safety Report 8675004 (Version 2)
Quarter: 2012Q4

REPORT INFORMATION
  Report Type: 
  Country: US (occurrence: US)
  Receive Date: 20120720
  Receipt Date: 20120830
  Transmission Date: 20130627
  Serious: Yes (Other)
  Sender: FDA-Public Use
  Company Number: US-BRISTOL-MYERS SQUIBB COMPANY-16766412

PATIENT
  Age: 60 Year
  Sex: Male

DRUGS (12)
  1. ABILIFY [Suspect]
     Indication: SCHIZOPHRENIA
     Route: 048
  2. INVEGA [Suspect]
  3. HALOPERIDOL [Suspect]
  4. ASPIRIN [Concomitant]
  5. KETOCONAZOLE CREAM [Concomitant]
  6. CALCIUM ACETATE [Concomitant]
  7. SODIUM POLYSTYRENE SULFONATE [Concomitant]
  8. EPOGEN [Concomitant]
  9. ATIVAN [Concomitant]
  10. GEODON [Concomitant]
  11. MOTRIN [Concomitant]
  12. TYLENOL [Concomitant]

REACTIONS (2)
  - Renal failure [Unknown]
  - Schizophrenia [Unknown]
